FAERS Safety Report 6781631-0 (Version None)
Quarter: 2010Q2

REPORT INFORMATION
  Report Type: 
  Country: None (occurrence: None)
  Receive Date: 20100621
  Receipt Date: 20100519
  Transmission Date: 20101027
  Serious: Yes (Hospitalization, Other)
  Sender: FDA-Public Use
  Company Number: US-BAYER-201022932NA

PATIENT
  Age: 74 Year
  Sex: Male

DRUGS (10)
  1. SOTALOL [Suspect]
     Indication: ATRIAL FIBRILLATION
     Dosage: TOTAL DAILY DOSE: 240 MG
     Route: 048
     Dates: start: 20090803, end: 20091019
  2. SOTALOL [Suspect]
     Dosage: TOTAL DAILY DOSE: 480 MG
     Route: 048
     Dates: start: 20091031, end: 20100417
  3. SOTALOL [Suspect]
     Dosage: TOTAL DAILY DOSE: 320 MG
     Route: 048
     Dates: start: 20091020, end: 20091030
  4. LISINOPRIL [Concomitant]
     Dosage: TOTAL DAILY DOSE: 20 MG
  5. AVODART [Concomitant]
  6. FLOMAX [Concomitant]
  7. SIMVASTATIN [Concomitant]
     Dates: end: 20100417
  8. SIMVASTATIN [Concomitant]
     Dates: start: 20100417
  9. COUMADIN [Concomitant]
  10. METOPROLOL SUCC [Concomitant]
     Dosage: TOTAL DAILY DOSE: 100 MG

REACTIONS (6)
  - ATRIAL FIBRILLATION [None]
  - BLOOD PRESSURE INCREASED [None]
  - CARDIAC PACEMAKER INSERTION [None]
  - HEART RATE INCREASED [None]
  - HEART RATE IRREGULAR [None]
  - VENTRICULAR EXTRASYSTOLES [None]
